FAERS Safety Report 25633384 (Version 1)
Quarter: 2025Q3

REPORT INFORMATION
  Report Type: Spontaneous
  Country: US (occurrence: US)
  Receive Date: 20250801
  Receipt Date: 20250801
  Transmission Date: 20251021
  Serious: Yes (Other)
  Sender: TEVA
  Company Number: US-TEVA-VS-3327797

PATIENT
  Age: 55 Year
  Sex: Male

DRUGS (3)
  1. AUSTEDO XR [Suspect]
     Active Substance: DEUTETRABENAZINE
     Indication: Huntington^s disease
     Dosage: 2 TABLETS BY MOUTH ONCE DAILY
     Route: 048
  2. AUSTEDO XR [Suspect]
     Active Substance: DEUTETRABENAZINE
     Indication: Huntington^s disease
     Dosage: 12MG, 1 TABLET ONCE DAILY FOR 1 WEEK
     Route: 048
  3. AUSTEDO XR [Suspect]
     Active Substance: DEUTETRABENAZINE
     Indication: Huntington^s disease
     Dosage: 12MG, 2 TABLETS ONCE DAILY
     Route: 048

REACTIONS (3)
  - Living in residential institution [Unknown]
  - Off label use [Unknown]
  - Drug titration error [Unknown]
